FAERS Safety Report 18308681 (Version 1)
Quarter: 2020Q3

REPORT INFORMATION
  Report Type: Report from Study
  Country: None (occurrence: TR)
  Receive Date: 20200925
  Receipt Date: 20200925
  Transmission Date: 20201103
  Serious: Yes (Death)
  Sender: FDA-Public Use
  Company Number: TR-ABBVIE-19K-161-2960737-00

PATIENT
  Age: 74 Year
  Sex: Female
  Weight: 72 kg

DRUGS (9)
  1. DUODOPA [Suspect]
     Active Substance: CARBIDOPA\LEVODOPA
     Dosage: MORNING: 6.30 ML CONTINOUS: 6.20 ML EXTRA: 1.00 ML
     Route: 050
     Dates: start: 20200123, end: 20200304
  2. DUODOPA [Suspect]
     Active Substance: CARBIDOPA\LEVODOPA
     Dosage: MORNING DOSE: 7.10 ML CONTINUOUS DOSE: 6.60 ML EXTRA DOSE: 1.00?ML
     Route: 050
     Dates: start: 20200618
  3. LEPONEX [Concomitant]
     Active Substance: CLOZAPINE
     Indication: PARKINSON^S DISEASE
     Route: 048
     Dates: start: 2018
  4. MADOPAR HBS [Concomitant]
     Active Substance: BENSERAZIDE HYDROCHLORIDE\LEVODOPA
     Indication: PARKINSON^S DISEASE
     Route: 048
     Dates: start: 2018
  5. ALDACTONE [Concomitant]
     Active Substance: SPIRONOLACTONE
     Indication: HYPERTENSION
     Route: 048
     Dates: start: 2019
  6. DUODOPA [Suspect]
     Active Substance: CARBIDOPA\LEVODOPA
     Dosage: MORNING: 6.30 ML CONTINOUS: 6.40 ML EXTRA: 1.00 ML
     Route: 050
     Dates: start: 20200304, end: 20200618
  7. DUODOPA [Suspect]
     Active Substance: CARBIDOPA\LEVODOPA
     Dosage: MORNING: 6.30 ML CONTINOUS: 6.00 ML EXTRA: 1.0 ML
     Route: 050
     Dates: start: 20191010, end: 20200123
  8. DILTIZEM [Concomitant]
     Indication: CARDIAC MURMUR
     Dates: start: 2019
  9. DUODOPA [Suspect]
     Active Substance: CARBIDOPA\LEVODOPA
     Indication: PARKINSON^S DISEASE
     Dosage: MORNING: 6.30 ML CONTINOUS: 5.60 ML EXTRA: 1.0 ML
     Route: 050
     Dates: start: 20190926, end: 20191010

REACTIONS (2)
  - Myocardial infarction [Fatal]
  - Bradykinesia [Not Recovered/Not Resolved]

NARRATIVE: CASE EVENT DATE: 2019
